FAERS Safety Report 4345968-7 (Version None)
Quarter: 2004Q2

REPORT INFORMATION
  Report Type: 
  Country: None (occurrence: None)
  Receive Date: 20040423
  Receipt Date: 20040407
  Transmission Date: 20050107
  Serious: Yes (Death)
  Sender: FDA-Public Use
  Company Number: 2004S1001005

PATIENT
  Age: 56 Year
  Sex: Female

DRUGS (3)
  1. CAELYX (LIPOSOMAL DOXORUBICIN) INJECTABLE SOLUTION [Suspect]
     Indication: OVARIAN CANCER
     Dosage: 45MG, INTRAVENOUS
     Route: 042
     Dates: start: 20031204
  2. CARBOPLATIN [Suspect]
     Indication: OVARIAN CANCER
     Dosage: 261MG, INTRAVENOUS
     Route: 042
     Dates: start: 20031204, end: 20031229
  3. PACLITAXEL [Suspect]
     Indication: OVARIAN CANCER
     Dosage: 460MG , INTRAVENOUS
     Route: 042
     Dates: start: 20031204, end: 20031229

REACTIONS (8)
  - ASCITES [None]
  - CARDIAC ARREST [None]
  - CIRCULATORY COLLAPSE [None]
  - DILATATION VENTRICULAR [None]
  - MALIGNANT NEOPLASM PROGRESSION [None]
  - OVARIAN CANCER [None]
  - PERITONEAL NEOPLASM [None]
  - PLEURAL EFFUSION [None]
